FAERS Safety Report 9435944 (Version 1)
Quarter: 2013Q3

REPORT INFORMATION
  Report Type: Other
  Country: GB (occurrence: GB)
  Receive Date: 20130801
  Receipt Date: 20130801
  Transmission Date: 20140515
  Serious: Yes (Hospitalization)
  Sender: FDA-Public Use
  Company Number: GB-FRI-1000046924

PATIENT
  Age: 56 Year
  Sex: Female

DRUGS (6)
  1. DILTIAZEM [Suspect]
  2. FLUTICASONE [Concomitant]
  3. SALBUTAMOL [Concomitant]
  4. FUROSEMIDE [Concomitant]
  5. OMEPRAZOLE [Concomitant]
  6. SIMVASTATIN [Concomitant]

REACTIONS (5)
  - Malaise [Recovering/Resolving]
  - Anxiety [Recovering/Resolving]
  - Metabolic alkalosis [Recovering/Resolving]
  - Lobar pneumonia [Recovering/Resolving]
  - Asthma [Recovering/Resolving]
